FAERS Safety Report 9175320 (Version 5)
Quarter: 2014Q1

REPORT INFORMATION
  Report Type: Report from Study
  Country: FR (occurrence: FR)
  Receive Date: 20130320
  Receipt Date: 20140211
  Transmission Date: 20141002
  Serious: Yes (Hospitalization)
  Sender: FDA-Public Use
  Company Number: FR-ROCHE-1203053

PATIENT
  Age: 56 Year
  Sex: Male
  Weight: 92 kg

DRUGS (22)
  1. PREDNISONE [Concomitant]
     Route: 048
     Dates: start: 201304, end: 20130630
  2. PREDNISONE [Concomitant]
     Route: 048
     Dates: start: 20130701
  3. NAPROXEN [Concomitant]
     Indication: RHEUMATOID ARTHRITIS
     Route: 048
     Dates: end: 20130107
  4. CACIT D3 [Concomitant]
     Indication: PROPHYLAXIS
     Route: 048
  5. CYTOTEC [Concomitant]
     Indication: PROPHYLAXIS
     Route: 048
     Dates: end: 20130106
  6. ADALIMUMAB [Concomitant]
     Indication: RHEUMATOID ARTHRITIS
     Route: 058
     Dates: start: 20100216, end: 20121009
  7. DOLIPRANE [Concomitant]
     Indication: NASOPHARYNGITIS
     Route: 048
     Dates: start: 20130101, end: 20130106
  8. IBUPROFENE [Concomitant]
     Indication: NASOPHARYNGITIS
     Route: 048
     Dates: start: 20130103, end: 20130106
  9. CEFPODOXIME [Concomitant]
     Indication: EAR INFECTION
     Route: 048
     Dates: start: 20130111, end: 20130118
  10. ACETYLLEUCINE [Concomitant]
     Indication: VERTIGO POSITIONAL
     Route: 048
     Dates: start: 20130214, end: 20130221
  11. AMOXICILLINE [Concomitant]
     Indication: GROIN ABSCESS
     Route: 048
     Dates: start: 20130205, end: 20130213
  12. CORTANCYL [Concomitant]
     Route: 048
     Dates: start: 199803
  13. TOCILIZUMAB [Suspect]
     Indication: RHEUMATOID ARTHRITIS
     Route: 042
     Dates: start: 20121109, end: 20130227
  14. LEFLUNOMIDE [Suspect]
     Indication: RHEUMATOID ARTHRITIS
     Route: 048
     Dates: start: 20040329, end: 20130312
  15. IPERTEN [Suspect]
     Indication: RHEUMATOID ARTHRITIS
     Route: 048
     Dates: start: 20130307, end: 20130312
  16. INEXIUM [Suspect]
     Indication: PRODUCT USED FOR UNKNOWN INDICATION
     Route: 048
     Dates: start: 20130107, end: 20130306
  17. OGASTORO [Suspect]
     Indication: PRODUCT USED FOR UNKNOWN INDICATION
     Route: 065
     Dates: start: 20130306, end: 20130312
  18. OROPERIDYS [Suspect]
     Indication: PRODUCT USED FOR UNKNOWN INDICATION
     Route: 048
     Dates: start: 20130306, end: 20130312
  19. BIPRETERAX [Suspect]
     Indication: PRODUCT USED FOR UNKNOWN INDICATION
     Route: 048
     Dates: start: 200210, end: 20130307
  20. PREDNISONE [Concomitant]
     Indication: RHEUMATOID ARTHRITIS
     Route: 048
     Dates: end: 20121117
  21. PREDNISONE [Concomitant]
     Route: 048
     Dates: start: 20121118, end: 20130227
  22. PREDNISONE [Concomitant]
     Route: 048
     Dates: start: 20130228, end: 20130331

REACTIONS (3)
  - Hepatitis [Recovered/Resolved]
  - Jaundice [Recovered/Resolved]
  - Nausea [Recovered/Resolved]
